FAERS Safety Report 7459268-X (Version None)
Quarter: 2011Q2

REPORT INFORMATION
  Report Type: 
  Country: None (occurrence: None)
  Receive Date: 20110426
  Receipt Date: 20110413
  Transmission Date: 20111010
  Serious: Yes (Other)
  Sender: FDA-Public Use
  Company Number: 029977

PATIENT
  Sex: Male

DRUGS (3)
  1. ALCOHOL /00002101/ (VODKA) [Suspect]
  2. DIAZEPAM [Suspect]
     Dosage: (1 TABL THERAPEUTIC DOSE ORAL)
     Route: 048
  3. KEPPRA [Suspect]
     Dosage: (1000 MG QD ORAL)
     Route: 048

REACTIONS (3)
  - ALCOHOL USE [None]
  - DRUG ABUSE [None]
  - ILL-DEFINED DISORDER [None]
